FAERS Safety Report 8259609-X (Version None)
Quarter: 2012Q2

REPORT INFORMATION
  Report Type: 
  Country: None (occurrence: None)
  Receive Date: 20120404
  Receipt Date: 20120328
  Transmission Date: 20120825
  Serious: Yes (Hospitalization, Other)
  Sender: FDA-Public Use
  Company Number: PHHY2011JP103099

PATIENT
  Sex: Male
  Weight: 53 kg

DRUGS (9)
  1. ALISKIREN [Suspect]
     Dosage: 150 MG, UNK
     Route: 048
     Dates: start: 20101218
  2. NORVASC [Concomitant]
     Indication: HYPERTENSION
     Dosage: 5 MG, UNK
     Route: 048
     Dates: start: 20101224
  3. NESINA [Concomitant]
     Dosage: 12.5 MG,
     Route: 048
     Dates: start: 20110420
  4. INDAPAMIDE [Concomitant]
     Indication: HYPERTENSION
     Dosage: 0.5 MG, UNK
     Route: 048
     Dates: start: 20110311
  5. ACTOS [Concomitant]
     Indication: DIABETES MELLITUS
     Dosage: 15 MG, UNK
     Route: 048
     Dates: start: 20110420
  6. LANSOPRAZOLE [Concomitant]
     Dosage: 100 MG, UNK
     Route: 048
     Dates: start: 20110420
  7. CRESTOR [Concomitant]
     Route: 048
     Dates: start: 20110420
  8. ASPIRIN [Concomitant]
     Dosage: 100 MG,
     Route: 048
     Dates: start: 20110420
  9. PLAVIX [Concomitant]
     Dosage: 75 MG,
     Route: 048
     Dates: start: 20110420

REACTIONS (7)
  - ELECTROCARDIOGRAM T WAVE ABNORMAL [None]
  - BLOOD PRESSURE DIASTOLIC DECREASED [None]
  - CORONARY ARTERY STENOSIS [None]
  - HAEMOGLOBIN DECREASED [None]
  - ARTERIOSCLEROSIS CORONARY ARTERY [None]
  - HAEMORRHAGE [None]
  - HAEMATOCRIT DECREASED [None]
